FAERS Safety Report 6007760 (Version 2)
Quarter: 2023Q1

REPORT INFORMATION
  Report Type: Spontaneous
  Country: US (occurrence: US)
  Receive Date: 20060320
  Receipt Date: 20230321
  Transmission Date: 20230418
  Serious: Yes (Other)
  Sender: FDA-Public Use
  Company Number: None

PATIENT
  Age: 47 Year
  Sex: Male

DRUGS (16)
  1. RAZADYNE [Suspect]
     Active Substance: GALANTAMINE HYDROBROMIDE
     Indication: Product used for unknown indication
     Route: 048
  2. RAZADYNE [Suspect]
     Active Substance: GALANTAMINE HYDROBROMIDE
     Route: 048
  3. ARIPIPRAZOLE [Concomitant]
     Active Substance: ARIPIPRAZOLE
     Indication: Product used for unknown indication
     Route: 065
  4. QUETIAPINE [Concomitant]
     Active Substance: QUETIAPINE
     Indication: Product used for unknown indication
     Route: 065
  5. LITHIUM [Concomitant]
     Active Substance: LITHIUM
     Indication: Product used for unknown indication
     Route: 065
  6. BENZTROPINE [Concomitant]
     Active Substance: BENZTROPINE
     Indication: Product used for unknown indication
     Route: 065
  7. TRAZODONE [Concomitant]
     Active Substance: TRAZODONE HYDROCHLORIDE
     Indication: Sleep disorder
     Route: 065
  8. ASPIRIN [Concomitant]
     Active Substance: ASPIRIN
  9. DOCUSATE [Concomitant]
     Active Substance: DOCUSATE
  10. ENALAPRIL [Concomitant]
     Active Substance: ENALAPRIL
  11. INSULIN NOS [Concomitant]
     Active Substance: INSULIN NOS
  12. LACTULOSE [Concomitant]
     Active Substance: LACTULOSE
  13. METOPROLOL [Concomitant]
     Active Substance: METOPROLOL
  14. RANITIDINE [Concomitant]
     Active Substance: RANITIDINE
  15. SIMVASTATIN [Concomitant]
     Active Substance: SIMVASTATIN
  16. VITAMIN E [Concomitant]
     Active Substance: .ALPHA.-TOCOPHEROL

REACTIONS (2)
  - Electrocardiogram QT prolonged [Unknown]
  - Muscular weakness [Unknown]

NARRATIVE: CASE EVENT DATE: 20040101
